FAERS Safety Report 9807422 (Version 3)
Quarter: 2014Q2

REPORT INFORMATION
  Report Type: Spontaneous
  Country: CA (occurrence: CA)
  Receive Date: 20140110
  Receipt Date: 20140627
  Transmission Date: 20141212
  Serious: Yes (Hospitalization, Other)
  Sender: FDA-Public Use
  Company Number: CA-AMGEN-CANSP2014000913

PATIENT
  Age: 71 Year
  Sex: Female

DRUGS (11)
  1. ENBREL [Suspect]
     Indication: PSORIASIS
     Dosage: 50 MG, QWK
     Route: 065
     Dates: start: 20130712
  2. VANCOMYCIN [Suspect]
     Indication: CLOSTRIDIUM DIFFICILE INFECTION
     Dosage: UNK
     Route: 065
     Dates: start: 201312
  3. RAMIPRIL [Concomitant]
     Dosage: UNK
  4. SPIRONOLACTONE [Concomitant]
     Dosage: UNK
  5. RABEPRAZOLE [Concomitant]
     Dosage: 20 MG, UNK
  6. CYMBALTA [Concomitant]
     Dosage: UNK 60
  7. CELEBREX [Concomitant]
     Dosage: 200 MG, UNK
  8. SIMVASTATIN [Concomitant]
     Dosage: UNK
  9. NORTRIPTYLINE [Concomitant]
     Dosage: 25 MG, UNK
  10. ASA [Concomitant]
     Dosage: 81 MG, UNK
  11. ACIDOPHILUS [Concomitant]
     Dosage: UNK

REACTIONS (8)
  - Diverticulitis [Recovering/Resolving]
  - Blood pressure decreased [Recovering/Resolving]
  - Clostridium difficile infection [Recovering/Resolving]
  - Tongue blistering [Recovering/Resolving]
  - White blood cell count increased [Recovering/Resolving]
  - Dehydration [Recovering/Resolving]
  - Catheter site bruise [Recovering/Resolving]
  - Psoriasis [Unknown]
